FAERS Safety Report 7905427-9 (Version None)
Quarter: 2011Q4

REPORT INFORMATION
  Report Type: 
  Country: None (occurrence: None)
  Receive Date: 20111109
  Receipt Date: 20111027
  Transmission Date: 20120403
  Serious: Yes (Hospitalization)
  Sender: FDA-Public Use
  Company Number: PT-MYLANLABS-2011S1022659

PATIENT
  Age: 50 Year
  Sex: Male

DRUGS (4)
  1. MYCOPHENOLATE MOFETIL [Suspect]
     Indication: IMMUNOSUPPRESSION
     Dosage: DOSE STATED AS 1.5 MG ID; REDUCED TO 1G/DAY AFTER ADR ONSET
     Route: 065
  2. CLOPIDOGREL [Concomitant]
     Route: 065
  3. PREDNISONE [Concomitant]
     Indication: IMMUNOSUPPRESSION
     Dosage: ID
     Route: 065
  4. TACROLIMUS [Concomitant]
     Indication: IMMUNOSUPPRESSION
     Dosage: ID
     Route: 065

REACTIONS (2)
  - FISTULA [None]
  - CROHN'S DISEASE [None]
